FAERS Safety Report 24071179 (Version 2)
Quarter: 2024Q4

REPORT INFORMATION
  Report Type: Report from Study
  Country: GB (occurrence: GB)
  Receive Date: 20240710
  Receipt Date: 20241106
  Transmission Date: 20250115
  Serious: Yes (Death)
  Sender: ROCHE
  Company Number: GB-ROCHE-3396361

PATIENT
  Age: 71 Year
  Sex: Female

DRUGS (1)
  1. RISDIPLAM [Suspect]
     Active Substance: RISDIPLAM
     Indication: Product used for unknown indication
     Route: 065
     Dates: start: 202304

REACTIONS (2)
  - Expired product administered [Unknown]
  - Death [Fatal]

NARRATIVE: CASE EVENT DATE: 20230615
